FAERS Safety Report 24217147 (Version 4)
Quarter: 2024Q4

REPORT INFORMATION
  Report Type: Spontaneous
  Country: JP (occurrence: JP)
  Receive Date: 20240816
  Receipt Date: 20241031
  Transmission Date: 20250114
  Serious: Yes (Other)
  Sender: MERCK
  Company Number: JP-MSD-M2024-31509

PATIENT
  Age: 8 Decade
  Sex: Male

DRUGS (6)
  1. KEYTRUDA [Suspect]
     Active Substance: PEMBROLIZUMAB
     Indication: Bile duct cancer stage IV
     Dosage: 200 MILLIGRAM, Q3W
     Route: 041
     Dates: start: 20240614
  2. CISPLATIN [Concomitant]
     Active Substance: CISPLATIN
     Indication: Bile duct cancer stage IV
     Dosage: 25 MILLIGRAM/SQ. METER
     Route: 041
     Dates: start: 20240614, end: 2024
  3. CISPLATIN [Concomitant]
     Active Substance: CISPLATIN
     Dosage: 12.5 MILLIGRAM/SQ. METER
     Route: 041
     Dates: start: 2024, end: 2024
  4. CISPLATIN [Concomitant]
     Active Substance: CISPLATIN
     Dosage: 11.25 MILLIGRAM/SQ. METER
     Route: 041
     Dates: start: 20240815
  5. GEMCITABINE HYDROCHLORIDE [Concomitant]
     Active Substance: GEMCITABINE HYDROCHLORIDE
     Indication: Bile duct cancer stage IV
     Dosage: 1000 MILLIGRAM/SQ. METER
     Route: 041
     Dates: start: 20240614, end: 2024
  6. GEMCITABINE HYDROCHLORIDE [Concomitant]
     Active Substance: GEMCITABINE HYDROCHLORIDE
     Dosage: 800 MILLIGRAM/SQ. METER
     Route: 041
     Dates: start: 20240815

REACTIONS (2)
  - Renal impairment [Recovered/Resolved]
  - Haemoglobin decreased [Recovering/Resolving]

NARRATIVE: CASE EVENT DATE: 20240701
